FAERS Safety Report 25904575 (Version 4)
Quarter: 2025Q4

REPORT INFORMATION
  Report Type: Report from Study
  Country: CA (occurrence: CA)
  Receive Date: 20251010
  Receipt Date: 20251119
  Transmission Date: 20260118
  Serious: Yes (Other)
  Sender: TAKEDA
  Company Number: CA-TAKEDA-2025TUS022300

PATIENT
  Age: 46 Year
  Sex: Female

DRUGS (8)
  1. VEDOLIZUMAB [Suspect]
     Active Substance: VEDOLIZUMAB
     Indication: Colitis ulcerative
     Dosage: 300 MILLIGRAM
  2. VEDOLIZUMAB [Suspect]
     Active Substance: VEDOLIZUMAB
     Dosage: 300 MILLIGRAM
  3. VEDOLIZUMAB [Suspect]
     Active Substance: VEDOLIZUMAB
     Dosage: 300 MILLIGRAM, Q4WEEKS
     Dates: end: 20251007
  4. METHOTREXATE [Concomitant]
     Active Substance: METHOTREXATE
     Dosage: 5 MILLIGRAM
  5. METHOTREXATE [Concomitant]
     Active Substance: METHOTREXATE
     Dosage: 20 MILLIGRAM
  6. FOLIC ACID [Concomitant]
     Active Substance: FOLIC ACID
     Dosage: UNK
  7. BUDESONIDE [Concomitant]
     Active Substance: BUDESONIDE
     Dosage: 9 MILLIGRAM
  8. PREDNISONE [Concomitant]
     Active Substance: PREDNISONE
     Dosage: UNK
     Dates: start: 20211208, end: 20220209

REACTIONS (6)
  - Colitis ulcerative [Unknown]
  - Abdominal pain upper [Unknown]
  - General physical health deterioration [Not Recovered/Not Resolved]
  - Off label use [Unknown]
  - Treatment failure [Unknown]
  - Abdominal pain [Unknown]

NARRATIVE: CASE EVENT DATE: 20251007
